FAERS Safety Report 6941836-2 (Version None)
Quarter: 2010Q3

REPORT INFORMATION
  Report Type: 
  Country: None (occurrence: None)
  Receive Date: 20100826
  Receipt Date: 20100814
  Transmission Date: 20110219
  Serious: Yes (Hospitalization)
  Sender: FDA-Public Use
  Company Number: US-PFIZER INC-2010102874

PATIENT
  Sex: Female
  Weight: 77.1 kg

DRUGS (2)
  1. LYRICA [Suspect]
     Indication: CONVULSION
     Dosage: 200 MG, 3X/DAY
     Route: 048
     Dates: start: 20080101
  2. CARBATROL [Suspect]
     Indication: CONVULSION
     Dosage: 200 MG, 3X/DAY
     Route: 048
     Dates: start: 20080101

REACTIONS (4)
  - FEELING ABNORMAL [None]
  - HEADACHE [None]
  - HYPERHIDROSIS [None]
  - PALPITATIONS [None]
